FAERS Safety Report 23382744 (Version 1)
Quarter: 2024Q1

REPORT INFORMATION
  Report Type: Spontaneous
  Country: FR (occurrence: FR)
  Receive Date: 20240109
  Receipt Date: 20240109
  Transmission Date: 20240409
  Serious: Yes (Hospitalization)
  Sender: FDA-Public Use
  Company Number: None

PATIENT
  Age: 89 Year
  Sex: Male
  Weight: 64 kg

DRUGS (2)
  1. ELTROMBOPAG OLAMINE [Suspect]
     Active Substance: ELTROMBOPAG OLAMINE
     Indication: Bone marrow failure
     Dosage: 150 MG, QD
     Route: 048
     Dates: start: 20191129, end: 20231017
  2. FILGRASTIM [Concomitant]
     Active Substance: FILGRASTIM
     Indication: Bone marrow failure
     Dosage: UNK
     Route: 065

REACTIONS (4)
  - Duodenitis [Recovered/Resolved]
  - Colitis [Recovered/Resolved]
  - Gastritis [Recovered/Resolved]
  - Diarrhoea [Recovered/Resolved]

NARRATIVE: CASE EVENT DATE: 20210901
